FAERS Safety Report 20810695 (Version 1)
Quarter: 2022Q2

REPORT INFORMATION
  Report Type: Spontaneous
  Country: IT (occurrence: None)
  Receive Date: 20220510
  Receipt Date: 20220510
  Transmission Date: 20220721
  Serious: Yes (Hospitalization)
  Sender: FDA-Public Use
  Company Number: None

PATIENT
  Age: 75 Year
  Sex: Female
  Weight: 96 kg

DRUGS (5)
  1. PROPOFOL [Suspect]
     Active Substance: PROPOFOL
     Indication: General anaesthesia
     Route: 042
     Dates: start: 20220330, end: 20220330
  2. KETOROLAC [Suspect]
     Active Substance: KETOROLAC TROMETHAMINE
     Indication: Postoperative analgesia
     Route: 065
     Dates: start: 20220330, end: 20220330
  3. CEFAZOLIN [Suspect]
     Active Substance: CEFAZOLIN
     Indication: Product used for unknown indication
     Route: 042
     Dates: start: 20220330, end: 20220404
  4. MORPHINE [Concomitant]
     Active Substance: MORPHINE
     Indication: Postoperative analgesia
     Route: 042
     Dates: start: 20220330, end: 20220331
  5. LEVOBUPIVACAINE HYDROCHLORIDE [Concomitant]
     Active Substance: LEVOBUPIVACAINE HYDROCHLORIDE
     Indication: Postoperative analgesia
     Route: 037
     Dates: start: 20220330, end: 20220330

REACTIONS (4)
  - Bronchospasm [Recovering/Resolving]
  - Dyspnoea [Recovering/Resolving]
  - Anaphylactic reaction [Recovering/Resolving]
  - Hypotension [Recovering/Resolving]

NARRATIVE: CASE EVENT DATE: 20220330
